FAERS Safety Report 21493941 (Version 2)
Quarter: 2022Q4

REPORT INFORMATION
  Report Type: Spontaneous
  Country: DE (occurrence: DE)
  Receive Date: 20221021
  Receipt Date: 20221024
  Transmission Date: 20230113
  Serious: Yes (Other)
  Sender: FDA-Public Use
  Company Number: DE-SA-2022SA418858

PATIENT
  Age: 70 Year
  Sex: Male

DRUGS (2)
  1. SABRIL [Suspect]
     Active Substance: VIGABATRIN
     Indication: Epilepsy
     Dosage: UNK
     Route: 065
     Dates: start: 199205, end: 199705
  2. SABRIL [Suspect]
     Active Substance: VIGABATRIN
     Dosage: DOSE WAS INCREASED TO 2 TIMES
     Route: 065
     Dates: start: 199703

REACTIONS (7)
  - Optic atrophy [Unknown]
  - Retinal disorder [Unknown]
  - Visual acuity reduced [Unknown]
  - Visual field defect [Unknown]
  - Cataract cortical [Unknown]
  - Mydriasis [Unknown]
  - Metamorphopsia [Unknown]
